FAERS Safety Report 10250498 (Version 1)
Quarter: 2014Q2

REPORT INFORMATION
  Report Type: Spontaneous
  Country: US (occurrence: None)
  Receive Date: 20140618
  Receipt Date: 20140618
  Transmission Date: 20141212
  Serious: Yes (Other)
  Sender: FDA-Public Use
  Company Number: None

PATIENT
  Age: 29 Year
  Sex: Female
  Weight: 79.38 kg

DRUGS (1)
  1. BUPENORPHINE [Suspect]
     Indication: DRUG DEPENDENCE
     Dosage: 2 PILLS ONCE DAILY TAKEN UNDER THE TONGUE
     Route: 048
     Dates: start: 20140611, end: 20140616

REACTIONS (4)
  - Myalgia [None]
  - Anger [None]
  - Fatigue [None]
  - Irritability [None]
